FAERS Safety Report 6344229-4 (Version None)
Quarter: 2009Q3

REPORT INFORMATION
  Report Type: 
  Country: None (occurrence: None)
  Receive Date: 20090908
  Receipt Date: 20090827
  Transmission Date: 20100115
  Serious: Yes (Other)
  Sender: FDA-Public Use
  Company Number: DE-PFIZER INC-2009261184

PATIENT

DRUGS (1)
  1. LYRICA [Suspect]
     Indication: PARTIAL SEIZURES
     Dosage: UNK

REACTIONS (6)
  - ALTERED STATE OF CONSCIOUSNESS [None]
  - ARRHYTHMIA [None]
  - CARDIAC ARREST [None]
  - CONVULSION [None]
  - EPILEPSY [None]
  - SYNCOPE [None]
